FAERS Safety Report 17985030 (Version 2)
Quarter: 2020Q3

REPORT INFORMATION
  Report Type: Spontaneous
  Country: US (occurrence: US)
  Receive Date: 20200706
  Receipt Date: 20200824
  Transmission Date: 20201103
  Serious: Yes (Hospitalization, Other)
  Sender: FDA-Public Use
  Company Number: US-NAPPMUNDI-USA-2020-0155323

PATIENT
  Sex: Male

DRUGS (1)
  1. OXYCONTIN [Suspect]
     Active Substance: OXYCODONE HYDROCHLORIDE
     Indication: JOINT INJURY
     Dosage: UNK
     Route: 048

REACTIONS (22)
  - Loss of consciousness [Unknown]
  - Social avoidant behaviour [Not Recovered/Not Resolved]
  - Mania [Not Recovered/Not Resolved]
  - Disturbance in attention [Not Recovered/Not Resolved]
  - Mental impairment [Not Recovered/Not Resolved]
  - Affect lability [Not Recovered/Not Resolved]
  - Anger [Unknown]
  - Psychotic disorder [Unknown]
  - Depressed mood [Not Recovered/Not Resolved]
  - Irritability [Not Recovered/Not Resolved]
  - Fear of crowded places [Not Recovered/Not Resolved]
  - Impulsive behaviour [Unknown]
  - Substance abuse [Unknown]
  - Bipolar disorder [Recovering/Resolving]
  - Disability [Not Recovered/Not Resolved]
  - Mood swings [Not Recovered/Not Resolved]
  - Anxiety [Not Recovered/Not Resolved]
  - Tachyphrenia [Not Recovered/Not Resolved]
  - Drug dependence [Unknown]
  - Suicide attempt [None]
  - Depression [Not Recovered/Not Resolved]
  - Delusion [Not Recovered/Not Resolved]

NARRATIVE: CASE EVENT DATE: 201108
